FAERS Safety Report 4518033-3 (Version None)
Quarter: 2004Q4

REPORT INFORMATION
  Report Type: 
  Country: None (occurrence: None)
  Receive Date: 20041130
  Receipt Date: 20041112
  Transmission Date: 20050328
  Serious: Yes (Life-Threatening, Hospitalization)
  Sender: FDA-Public Use
  Company Number: 9294

PATIENT
  Age: 62 Year
  Sex: Male

DRUGS (6)
  1. ACYCLOVIR [Suspect]
     Indication: NERVOUS SYSTEM DISORDER
     Dosage: 700 MG FREQ
     Route: 042
     Dates: start: 20040925, end: 20040927
  2. SPIRONOLACTONE [Concomitant]
  3. LANSOPRAZOLE [Concomitant]
  4. CAPTOPRIL [Concomitant]
  5. DOXAZOSIN [Concomitant]
  6. EZETIMIBE [Concomitant]

REACTIONS (2)
  - BLOOD SODIUM DECREASED [None]
  - RENAL FAILURE ACUTE [None]
